FAERS Safety Report 5771947-9 (Version None)
Quarter: 2008Q2

REPORT INFORMATION
  Report Type: 
  Country: None (occurrence: None)
  Receive Date: 20080612
  Receipt Date: 20080612
  Transmission Date: 20081010
  Serious: No
  Sender: FDA-Public Use
  Company Number: None

PATIENT
  Age: 39 Year
  Sex: Male
  Weight: 84.28 kg

DRUGS (1)
  1. CLOFARABINE [Suspect]

REACTIONS (3)
  - PRURITUS [None]
  - SKIN EXFOLIATION [None]
  - SKIN HYPERPIGMENTATION [None]
